FAERS Safety Report 4458163-8 (Version None)
Quarter: 2004Q3

REPORT INFORMATION
  Report Type: 
  Country: None (occurrence: None)
  Receive Date: 20040924
  Receipt Date: 20030605
  Transmission Date: 20050211
  Serious: Yes (Hospitalization, Disabling)
  Sender: FDA-Public Use
  Company Number: US-MERCK-0306USA00814

PATIENT
  Age: 77 Year
  Sex: Male
  Weight: 98 kg

DRUGS (2)
  1. VIOXX [Suspect]
     Route: 048
  2. COUMADIN [Concomitant]
     Route: 065

REACTIONS (10)
  - ACTINIC KERATOSIS [None]
  - ADVERSE EVENT [None]
  - BENIGN PROSTATIC HYPERPLASIA [None]
  - BLADDER DIVERTICULUM [None]
  - BLADDER TRABECULATION [None]
  - CARDIAC FAILURE CONGESTIVE [None]
  - CARDIOMYOPATHY [None]
  - CORONARY ARTERY DISEASE [None]
  - MITRAL VALVE INCOMPETENCE [None]
  - TRICUSPID VALVE INCOMPETENCE [None]
